FAERS Safety Report 6299157-X (Version None)
Quarter: 2009Q3

REPORT INFORMATION
  Report Type: 
  Country: None (occurrence: None)
  Receive Date: 20090806
  Receipt Date: 20090727
  Transmission Date: 20100115
  Serious: Yes (Other)
  Sender: FDA-Public Use
  Company Number: ES-JNJFOC-20090709483

PATIENT
  Age: 61 Year
  Sex: Female

DRUGS (4)
  1. REMICADE [Suspect]
     Route: 042
  2. REMICADE [Suspect]
     Indication: RHEUMATOID ARTHRITIS
     Route: 042
  3. GLUCOCORTICOIDS [Concomitant]
  4. METHOTREXATE [Concomitant]

REACTIONS (2)
  - LYMPHADENOPATHY [None]
  - PULMONARY TUBERCULOSIS [None]
